FAERS Safety Report 9844382 (Version 1)
Quarter: 2014Q1

REPORT INFORMATION
  Report Type: Spontaneous
  Country: JP (occurrence: JP)
  Receive Date: 20140127
  Receipt Date: 20140127
  Transmission Date: 20141002
  Serious: Yes (Other)
  Sender: FDA-Public Use
  Company Number: PHHY2014JP004785

PATIENT
  Sex: Male
  Weight: 2.15 kg

DRUGS (5)
  1. CICLOSPORIN [Suspect]
     Dosage: MATERNAL DOSE 300 MG, PER DAY
     Route: 064
  2. CLOMIPHENE [Suspect]
     Route: 064
  3. GRANULOCYTE COLONY-STIMULATING FACTOR NOS [Suspect]
     Dosage: MATERNAL DOSE 300 UG, PER DAY
     Route: 064
  4. RITODRINE HYDROCHLORIDE [Suspect]
     Dosage: MATERNAL DOSE 15 MG, PER DAY
     Route: 064
  5. METHYLDOPA [Suspect]
     Dosage: MATERNAL DOSE 500 MG, PER DAY
     Route: 064

REACTIONS (2)
  - Low birth weight baby [Unknown]
  - Foetal exposure during pregnancy [Unknown]
